FAERS Safety Report 17326534 (Version 2)
Quarter: 2023Q1

REPORT INFORMATION
  Report Type: Spontaneous
  Country: CA (occurrence: CA)
  Receive Date: 20200127
  Receipt Date: 20230113
  Transmission Date: 20230417
  Serious: Yes (Other)
  Sender: FDA-Public Use
  Company Number: CA-009507513-2001CAN008865

PATIENT
  Age: 79 Year
  Sex: Male

DRUGS (3)
  1. JANUVIA [Suspect]
     Active Substance: SITAGLIPTIN PHOSPHATE
     Indication: Diabetes mellitus
     Dosage: 50 MILLIGRAM, 1 EVERY 1 DAY
     Route: 048
     Dates: start: 20160120, end: 20190312
  2. HUMALOG [Concomitant]
     Active Substance: INSULIN LISPRO
     Dosage: DOSAGE FROM: SOLUTION FOR INTRAMUSCULAR
     Route: 065
  3. HUMULIN N [Concomitant]
     Active Substance: INSULIN HUMAN
     Dosage: DOSAGE FORM: SUSPENSION SUBCUTANEOUS
     Route: 065

REACTIONS (3)
  - Dermatitis [Recovering/Resolving]
  - Pruritus [Recovered/Resolved]
  - Skin plaque [Recovering/Resolving]

NARRATIVE: CASE EVENT DATE: 20190101
